FAERS Safety Report 9131561 (Version 1)
Quarter: 2013Q1

REPORT INFORMATION
  Report Type: Report from Study
  Country: US (occurrence: US)
  Receive Date: 20130301
  Receipt Date: 20130301
  Transmission Date: 20140127
  Serious: No
  Sender: FDA-Public Use
  Company Number: US-MYLANLABS-2012S1008096

PATIENT
  Age: 49 Year
  Sex: Female

DRUGS (6)
  1. AMNESTEEM CAPSULES [Suspect]
     Indication: ACNE CYSTIC
     Route: 048
     Dates: start: 20110929, end: 20120223
  2. PREDNISONE [Concomitant]
  3. SPIRONOLACTONE [Concomitant]
  4. STOOL SOFTENER [Concomitant]
  5. CITRACAL /00751520/ [Concomitant]
  6. MULTIVITAMINS [Concomitant]

REACTIONS (2)
  - Arthralgia [Not Recovered/Not Resolved]
  - Pain in extremity [Not Recovered/Not Resolved]
